FAERS Safety Report 12456473 (Version 1)
Quarter: 2016Q2

REPORT INFORMATION
  Report Type: Spontaneous
  Country: US (occurrence: US)
  Receive Date: 20160610
  Receipt Date: 20160610
  Transmission Date: 20160815
  Serious: No
  Sender: FDA-Public Use
  Company Number: US-PFIZER INC-2016264907

PATIENT
  Sex: Male

DRUGS (1)
  1. NORVASC [Suspect]
     Active Substance: AMLODIPINE BESYLATE
     Dosage: UNK

REACTIONS (6)
  - Blood pressure inadequately controlled [Unknown]
  - Product quality issue [Unknown]
  - Product taste abnormal [Unknown]
  - Malaise [Unknown]
  - Oropharyngeal pain [Unknown]
  - Foreign body [Unknown]
